FAERS Safety Report 5872214-5 (Version None)
Quarter: 2008Q3

REPORT INFORMATION
  Report Type: 
  Country: None (occurrence: None)
  Receive Date: 20080902
  Receipt Date: 20080820
  Transmission Date: 20090109
  Serious: Yes (Disabling, Other)
  Sender: FDA-Public Use
  Company Number: GXKR2008GR07884

PATIENT
  Age: 11 Year
  Sex: Male

DRUGS (3)
  1. CARBAMAZEPINE [Suspect]
     Indication: EPILEPSY
  2. LAMOTRIGINE [Suspect]
     Indication: EPILEPSY
  3. VALPROATE SODIUM [Suspect]
     Indication: EPILEPSY

REACTIONS (6)
  - EPIPHYSIOLYSIS [None]
  - HYPERPARATHYROIDISM SECONDARY [None]
  - HYPOTHYROIDISM [None]
  - JOINT DISLOCATION [None]
  - RICKETS [None]
  - VITAMIN D DEFICIENCY [None]
